FAERS Safety Report 8110118-8 (Version None)
Quarter: 2012Q1

REPORT INFORMATION
  Report Type: 
  Country: None (occurrence: None)
  Receive Date: 20120202
  Receipt Date: 20120125
  Transmission Date: 20120608
  Serious: No
  Sender: FDA-Public Use
  Company Number: US-AMGEN-USASP2011069562

PATIENT
  Age: 68 Year
  Sex: Female
  Weight: 131.97 kg

DRUGS (4)
  1. SYNTHROID [Concomitant]
     Dosage: UNK
  2. PAXIL [Concomitant]
     Dosage: UNK
  3. WELLBUTRIN [Concomitant]
     Dosage: UNK
  4. ENBREL [Suspect]
     Indication: PSORIATIC ARTHROPATHY
     Dosage: 50 MG, QWK
     Dates: start: 20110501

REACTIONS (1)
  - HEARING IMPAIRED [None]
